FAERS Safety Report 10866153 (Version 1)
Quarter: 2015Q1

REPORT INFORMATION
  Report Type: Spontaneous
  Country: US (occurrence: None)
  Receive Date: 20150219
  Receipt Date: 20150219
  Transmission Date: 20150721
  Serious: Yes (Hospitalization)
  Sender: FDA-Public Use
  Company Number: None

PATIENT
  Age: 58 Year
  Sex: Female
  Weight: 65.77 kg

DRUGS (1)
  1. VALSARTAN 160-25 AUROBINDO PHARMA [Suspect]
     Active Substance: HYDROCHLOROTHIAZIDE\VALSARTAN
     Indication: HYPERTENSION
     Dosage: 1 PILL  ONCE DAILY  TAKEN BY MOUTH
     Route: 048
     Dates: start: 20150127, end: 20150208

REACTIONS (5)
  - Hypoaesthesia [None]
  - Hypoaesthesia oral [None]
  - Paraesthesia oral [None]
  - Product substitution issue [None]
  - Paraesthesia [None]

NARRATIVE: CASE EVENT DATE: 20150203
